FAERS Safety Report 7482657-4 (Version None)
Quarter: 2011Q2

REPORT INFORMATION
  Report Type: 
  Country: None (occurrence: None)
  Receive Date: 20110516
  Receipt Date: 20110511
  Transmission Date: 20111010
  Serious: Yes (Life-Threatening, Hospitalization, Disabling, Other)
  Sender: FDA-Public Use
  Company Number: PHHO2011GB01673

PATIENT
  Sex: Female
  Weight: 19 kg

DRUGS (13)
  1. COTRIM [Concomitant]
  2. GLEEVEC [Suspect]
     Indication: ACUTE LYMPHOCYTIC LEUKAEMIA
     Dosage: 100 MG/200MG, ALTERNATE DAYS
     Route: 048
     Dates: start: 20101214, end: 20101214
  3. DOXORUBICIN HCL [Concomitant]
     Dosage: 19 MG, UNK
     Route: 042
     Dates: start: 20101223, end: 20110105
  4. OXYCODONE HCL [Concomitant]
  5. FLOXACILLIN SODIUM [Concomitant]
  6. GABAPENTIN [Concomitant]
  7. FOLIC ACID [Concomitant]
  8. COLECALCIFEROL [Concomitant]
  9. MAGNESIUM GLYCEROPHOSPHATE [Concomitant]
  10. SANDO K [Concomitant]
  11. DEXAMETHASONE [Concomitant]
     Dosage: 400 MG, BID
     Route: 048
     Dates: start: 20101214, end: 20110101
  12. AMILORIDE HYDROCHLORIDE [Concomitant]
  13. OMEPRAZOLE [Concomitant]

REACTIONS (8)
  - HYPERNATRAEMIA [None]
  - LIVER FUNCTION TEST ABNORMAL [None]
  - ACIDOSIS HYPERCHLORAEMIC [None]
  - PYREXIA [None]
  - MALAISE [None]
  - ASPERGILLOSIS [None]
  - SYSTEMIC CANDIDA [None]
  - FEBRILE NEUTROPENIA [None]
